FAERS Safety Report 9953569 (Version 2)
Quarter: 2014Q1

REPORT INFORMATION
  Report Type: Spontaneous
  Country: GB (occurrence: GB)
  Receive Date: 20140304
  Receipt Date: 20140321
  Transmission Date: 20141002
  Serious: Yes (Death, Other)
  Sender: FDA-Public Use
  Company Number: PHFR2014GB001904

PATIENT
  Age: 53 Year
  Sex: Female

DRUGS (5)
  1. CLOZARIL [Suspect]
     Indication: SCHIZOPHRENIA
     Dosage: 375 MG, UNK
     Route: 048
     Dates: start: 20030617
  2. ASPIRIN [Concomitant]
     Indication: PYREXIA
     Dosage: UNK UKN, UNK
  3. DOMPERIDONE [Concomitant]
     Dosage: UNK UKN, UNK
  4. SENNA [Concomitant]
     Dosage: UNK UKN, UNK
  5. HYDROXYZINE [Concomitant]
     Dosage: UNK UKN, UNK

REACTIONS (3)
  - Death [Fatal]
  - Malaise [Unknown]
  - Platelet count increased [Unknown]
